FAERS Safety Report 8078581-9 (Version None)
Quarter: 2012Q1

REPORT INFORMATION
  Report Type: 
  Country: None (occurrence: None)
  Receive Date: 20120127
  Receipt Date: 20110103
  Transmission Date: 20120608
  Serious: No
  Sender: FDA-Public Use
  Company Number: US-ABBOTT-11P-163-0695014-00

PATIENT
  Age: 52 Year
  Sex: Female

DRUGS (11)
  1. PERCOCET [Concomitant]
     Indication: PAIN
  2. PERCOCET [Concomitant]
     Indication: FIBROMYALGIA
  3. HUMIRA [Suspect]
     Indication: CROHN'S DISEASE
     Dates: start: 20110103, end: 20110103
  4. BUTALBITAL COMPOUND [Concomitant]
     Indication: MIGRAINE
     Dosage: DAILY
  5. HUMIRA [Suspect]
  6. PREDNISONE [Concomitant]
     Indication: CROHN'S DISEASE
     Dosage: 10-20MG AS NEEDED WITH FLARE UP
  7. BENTYL [Concomitant]
     Indication: ABDOMINAL PAIN UPPER
  8. GABAPENTIN [Concomitant]
     Indication: PRODUCT USED FOR UNKNOWN INDICATION
  9. CLONAZEPAM [Concomitant]
     Indication: INSOMNIA
     Dosage: AT BEDTIME
  10. HUMIRA [Suspect]
  11. FLEXERIL [Concomitant]
     Indication: MUSCLE DISORDER

REACTIONS (2)
  - INJECTION SITE PAIN [None]
  - INJECTION SITE HAEMORRHAGE [None]
